FAERS Safety Report 16288078 (Version 5)
Quarter: 2019Q2

REPORT INFORMATION
  Report Type: Report from Study
  Country: US (occurrence: US)
  Receive Date: 20190508
  Receipt Date: 20190612
  Transmission Date: 20190711
  Serious: Yes (Hospitalization)
  Sender: FDA-Public Use
  Company Number: US-GILEAD-2019-0402718

PATIENT
  Age: 80 Year
  Sex: Female

DRUGS (4)
  1. UPTRAVI [Concomitant]
     Active Substance: SELEXIPAG
  2. ADCIRCA [Concomitant]
     Active Substance: TADALAFIL
     Dosage: UNK
  3. AMBRISENTAN [Suspect]
     Active Substance: AMBRISENTAN
     Indication: PRODUCT USED FOR UNKNOWN INDICATION
     Dosage: 10 MG, QD
     Route: 048
     Dates: start: 20140519
  4. ELIQUIS [Concomitant]
     Active Substance: APIXABAN
     Dosage: UNK

REACTIONS (10)
  - Dyspnoea [Not Recovered/Not Resolved]
  - Headache [Unknown]
  - Asthenia [Not Recovered/Not Resolved]
  - Dyspnoea [Unknown]
  - Anxiety [Not Recovered/Not Resolved]
  - Intentional product use issue [Not Recovered/Not Resolved]
  - Diarrhoea [Recovered/Resolved]
  - Fatigue [Not Recovered/Not Resolved]
  - Weight decreased [Unknown]
  - Malaise [Unknown]

NARRATIVE: CASE EVENT DATE: 201904
